FAERS Safety Report 5644732-6 (Version None)
Quarter: 2008Q1

REPORT INFORMATION
  Report Type: 
  Country: None (occurrence: None)
  Receive Date: 20080229
  Receipt Date: 20070629
  Transmission Date: 20080703
  Serious: No
  Sender: FDA-Public Use
  Company Number: A0661012A

PATIENT

DRUGS (2)
  1. VALTREX [Suspect]
     Indication: HERPES ZOSTER
     Route: 048
  2. NO CONCURRENT MEDICATION [Concomitant]

REACTIONS (1)
  - CONFUSIONAL STATE [None]
